FAERS Safety Report 16997741 (Version 1)
Quarter: 2019Q4

REPORT INFORMATION
  Report Type: Spontaneous
  Country: US (occurrence: US)
  Receive Date: 20191106
  Receipt Date: 20191106
  Transmission Date: 20200122
  Serious: Yes (Other)
  Sender: FDA-Public Use
  Company Number: US-STRIDES ARCOLAB LIMITED-2019SP009268

PATIENT
  Age: 52 Year
  Sex: Female

DRUGS (2)
  1. CAPSAICIN. [Concomitant]
     Active Substance: CAPSAICIN
     Indication: BURNING SENSATION
     Dosage: UNK
     Route: 061
  2. GABAPENTIN. [Suspect]
     Active Substance: GABAPENTIN
     Indication: BURNING SENSATION
     Dosage: UNK
     Route: 048

REACTIONS (1)
  - Drug ineffective for unapproved indication [Unknown]
